FAERS Safety Report 9861866 (Version 2)
Quarter: 2014Q2

REPORT INFORMATION
  Report Type: Spontaneous
  Country: DE (occurrence: DE)
  Receive Date: 20140203
  Receipt Date: 20140408
  Transmission Date: 20141212
  Serious: No
  Sender: FDA-Public Use
  Company Number: DE-ROCHE-1342736

PATIENT
  Age: 52 Year
  Sex: Female
  Weight: 85 kg

DRUGS (5)
  1. ROACTEMRA [Suspect]
     Indication: RHEUMATOID ARTHRITIS
     Route: 042
     Dates: start: 201307
  2. PREDNISOLON [Suspect]
     Indication: RHEUMATOID ARTHRITIS
     Route: 048
     Dates: start: 201111
  3. DICLOFENAC [Suspect]
     Indication: RHEUMATOID ARTHRITIS
     Route: 048
     Dates: end: 201111
  4. VITAMIN D3 [Concomitant]
     Indication: OSTEOPOROSIS PROPHYLAXIS
     Route: 048
     Dates: start: 201307
  5. L-THYROXIN [Concomitant]
     Indication: GOITRE
     Route: 048

REACTIONS (2)
  - Systemic lupus erythematosus [Recovering/Resolving]
  - Alopecia [Unknown]
